FAERS Safety Report 6345288-5 (Version None)
Quarter: 2009Q3

REPORT INFORMATION
  Report Type: 
  Country: None (occurrence: None)
  Receive Date: 20090909
  Receipt Date: 20090831
  Transmission Date: 20100115
  Serious: Yes (Other)
  Sender: FDA-Public Use
  Company Number: PT-ASTRAZENECA-2009SE10730

PATIENT
  Age: 53 Year
  Sex: Female

DRUGS (1)
  1. TAMOXIFEN CITRATE [Suspect]
     Route: 048
     Dates: start: 20010301

REACTIONS (1)
  - PORPHYRIA NON-ACUTE [None]
